FAERS Safety Report 5563310-0 (Version None)
Quarter: 2007Q4

REPORT INFORMATION
  Report Type: 
  Country: None (occurrence: None)
  Receive Date: 20071217
  Receipt Date: 20071213
  Transmission Date: 20080405
  Serious: Yes (Life-Threatening)
  Sender: FDA-Public Use
  Company Number: JP-ASTRAZENECA-2007AP07708

PATIENT
  Age: 30831 Day
  Sex: Male

DRUGS (13)
  1. OMEPRAL [Suspect]
     Indication: GASTRIC ULCER HAEMORRHAGE
     Route: 042
     Dates: start: 20071116, end: 20071120
  2. OMEPRAL [Suspect]
     Route: 048
     Dates: start: 20071121, end: 20071124
  3. DIOVAN [Concomitant]
     Route: 048
     Dates: start: 20071107, end: 20071116
  4. ASPIRIN [Concomitant]
     Route: 048
     Dates: start: 20071107, end: 20071116
  5. PANALDINE [Concomitant]
     Route: 048
     Dates: start: 20071107, end: 20071116
  6. AMLODIN OD [Concomitant]
     Route: 048
     Dates: start: 20071107
  7. ALDACTONE [Concomitant]
     Route: 048
     Dates: start: 20071107
  8. KALGUT [Concomitant]
     Route: 048
     Dates: start: 20071107
  9. SERMION [Concomitant]
     Route: 048
     Dates: start: 20071107
  10. THYRADIN S [Concomitant]
     Indication: HYPOTHYROIDISM
     Route: 048
     Dates: start: 20071107
  11. ATELEC [Concomitant]
     Route: 048
     Dates: start: 20071111
  12. HANP [Concomitant]
     Route: 042
     Dates: start: 20071113
  13. FIRSTCIN BAG S [Concomitant]
     Route: 041
     Dates: start: 20071113

REACTIONS (1)
  - TORSADE DE POINTES [None]
